FAERS Safety Report 21492105 (Version 1)
Quarter: 2022Q4

REPORT INFORMATION
  Report Type: Spontaneous
  Country: US (occurrence: None)
  Receive Date: 20221020
  Receipt Date: 20221020
  Transmission Date: 20230112
  Serious: Yes (Other)
  Sender: FDA-Public Use
  Company Number: None

PATIENT
  Age: 47 Year
  Sex: Female
  Weight: 101.25 kg

DRUGS (1)
  1. INFED [Suspect]
     Active Substance: IRON DEXTRAN
     Indication: Anaemia
     Dosage: FREQUENCY : ONCE;?
     Route: 042
     Dates: start: 20221018, end: 20221018

REACTIONS (2)
  - Respiratory tract congestion [None]
  - Cough [None]

NARRATIVE: CASE EVENT DATE: 20221018
